FAERS Safety Report 8474276-8 (Version None)
Quarter: 2012Q2

REPORT INFORMATION
  Report Type: 
  Country: None (occurrence: None)
  Receive Date: 20120628
  Receipt Date: 20120618
  Transmission Date: 20120825
  Serious: Yes (Other)
  Sender: FDA-Public Use
  Company Number: GB-JNJFOC-20120609450

PATIENT
  Sex: Female

DRUGS (2)
  1. SIMPONI [Suspect]
     Indication: PRODUCT USED FOR UNKNOWN INDICATION
     Route: 058
     Dates: start: 20120609
  2. SIMPONI [Suspect]
     Route: 058

REACTIONS (4)
  - NASOPHARYNGITIS [None]
  - EYE HAEMORRHAGE [None]
  - EAR CONGESTION [None]
  - COUGH [None]
